FAERS Safety Report 10756136 (Version 1)
Quarter: 2015Q1

REPORT INFORMATION
  Report Type: Spontaneous
  Country: US (occurrence: None)
  Receive Date: 20150123
  Receipt Date: 20150123
  Transmission Date: 20150721
  Serious: Yes (Hospitalization, Other)
  Sender: FDA-Public Use
  Company Number: 2014TUS011385

PATIENT
  Age: 59 Year
  Sex: Male

DRUGS (8)
  1. METOPROLOL [Concomitant]
     Active Substance: METOPROLOL
  2. PREDNISONE. [Concomitant]
     Active Substance: PREDNISONE
  3. DICYCLOMINE [Concomitant]
     Active Substance: DICYCLOMINE HYDROCHLORIDE
  4. POTASSIUM CHLORIDE. [Concomitant]
     Active Substance: POTASSIUM CHLORIDE
  5. IMIPRAMINE [Concomitant]
     Active Substance: IMIPRAMINE
  6. ENTYVIO [Suspect]
     Active Substance: VEDOLIZUMAB
     Indication: COLITIS ULCERATIVE
     Dosage: 300 MG, FIRST DOSE, INTRAVENOUS
     Route: 042
     Dates: start: 20140924, end: 20140924
  7. APRISO (MESALAZINE) [Concomitant]
  8. PLAVIX (CLOPIDOGREL BISULFATE) [Concomitant]

REACTIONS (4)
  - Small intestinal obstruction [None]
  - Splenic infarction [None]
  - Splenic thrombosis [None]
  - Ileus [None]

NARRATIVE: CASE EVENT DATE: 20141110
